FAERS Safety Report 23825102 (Version 4)
Quarter: 2024Q2

REPORT INFORMATION
  Report Type: Spontaneous
  Country: DE (occurrence: DE)
  Receive Date: 20240507
  Receipt Date: 20240619
  Transmission Date: 20240716
  Serious: Yes (Life-Threatening, Other)
  Sender: FDA-Public Use
  Company Number: None

PATIENT
  Age: 72 Year
  Sex: Female

DRUGS (5)
  1. LACOSAMIDE [Interacting]
     Active Substance: LACOSAMIDE
     Indication: Partial seizures
     Dosage: 100 MILLIGRAM PER DAY / 50MG (1-0-1)
     Dates: start: 20230713
  2. LACOSAMIDE [Interacting]
     Active Substance: LACOSAMIDE
     Dosage: 200 MILLIGRAM PER DAY / RAISED TO 100MG (1-0-1) ON 17.07.2023.
     Dates: start: 20230717, end: 20230731
  3. FLECAINIDE [Interacting]
     Active Substance: FLECAINIDE
     Indication: Atrial fibrillation
     Dosage: UNK
  4. FLECAINIDE [Interacting]
     Active Substance: FLECAINIDE
     Dosage: 100MG (1-0-1) / 200MG PER DAY
  5. TOLVAPTAN [Concomitant]
     Active Substance: TOLVAPTAN
     Indication: Product used for unknown indication
     Dosage: 15MG (1-0-0) / 15MG PER DAY

REACTIONS (8)
  - Electrocardiogram QRS complex prolonged [Recovered/Resolved]
  - Atrioventricular block [Recovered/Resolved]
  - Drug interaction [Unknown]
  - Bundle branch block right [Recovered/Resolved]
  - Acute kidney injury [Recovering/Resolving]
  - Defect conduction intraventricular [Recovering/Resolving]
  - Rhythm idioventricular [Recovering/Resolving]
  - Hyponatraemia [Recovering/Resolving]

NARRATIVE: CASE EVENT DATE: 20230731
